FAERS Safety Report 7584497-4 (Version None)
Quarter: 2011Q2

REPORT INFORMATION
  Report Type: 
  Country: None (occurrence: None)
  Receive Date: 20110630
  Receipt Date: 20110620
  Transmission Date: 20111010
  Serious: Yes (Hospitalization)
  Sender: FDA-Public Use
  Company Number: JP-BRISTOL-MYERS SQUIBB COMPANY-15843816

PATIENT
  Age: 62 Year
  Sex: Male

DRUGS (6)
  1. FAMOTIDINE [Concomitant]
     Dates: start: 20100420
  2. BETAMETHASONE VALERATE [Concomitant]
     Dates: start: 20110301
  3. FUROSEMIDE [Concomitant]
     Dates: start: 20100910
  4. SPRYCEL [Suspect]
     Indication: CHRONIC MYELOID LEUKAEMIA
     Dosage: INTERRUPTED ON 20JUN2011
     Route: 048
     Dates: start: 20080822, end: 20110620
  5. GENTAMICIN SULFATE [Concomitant]
     Dosage: CREAM
     Route: 061
     Dates: start: 20110301
  6. PREDNISOLONE [Concomitant]
     Dates: start: 20100302

REACTIONS (1)
  - PNEUMOTHORAX [None]
